FAERS Safety Report 6533471-5 (Version None)
Quarter: 2010Q1

REPORT INFORMATION
  Report Type: 
  Country: None (occurrence: None)
  Receive Date: 20100111
  Receipt Date: 20091111
  Transmission Date: 20100710
  Serious: No
  Sender: FDA-Public Use
  Company Number: A0816511A

PATIENT
  Age: 57 Year
  Sex: Male

DRUGS (6)
  1. REQUIP XL [Suspect]
     Indication: RESTLESS LEGS SYNDROME
     Dosage: 4MG PER DAY
     Route: 048
     Dates: start: 20091102
  2. PERCOCET [Concomitant]
  3. SOMA [Concomitant]
  4. ATENOLOL [Concomitant]
  5. GLUCOPHAGE [Concomitant]
  6. ASPIRIN [Concomitant]

REACTIONS (2)
  - ABDOMINAL PAIN UPPER [None]
  - DISCOMFORT [None]
